FAERS Safety Report 7099472-6 (Version None)
Quarter: 2010Q4

REPORT INFORMATION
  Report Type: 
  Country: None (occurrence: None)
  Receive Date: 20101112
  Receipt Date: 20101102
  Transmission Date: 20110411
  Serious: Yes (Life-Threatening, Hospitalization, Disabling)
  Sender: FDA-Public Use
  Company Number: PT-ROCHE-740593

PATIENT
  Sex: Male
  Weight: 80 kg

DRUGS (6)
  1. AVASTIN [Suspect]
     Dosage: AVASTIN CONCENTRATE FOR SOLUTION FOR INFUSION 25 MG/ML, FREQUENCY:PER DAY.
     Route: 042
     Dates: start: 20100408, end: 20100928
  2. ATROPINE [Concomitant]
     Dosage: FREQUENCY:DAILY
     Route: 042
     Dates: start: 20090303, end: 20100928
  3. CALCIUM LEVOFOLINATE [Concomitant]
     Dosage: FREQUENCY:DAILY
     Route: 042
     Dates: end: 20100928
  4. ONDANSETRON [Concomitant]
     Indication: ANTIEMETIC SUPPORTIVE CARE
     Dosage: FREQUENCY:DAILY
     Route: 042
     Dates: start: 20090319, end: 20100928
  5. FLUOROURACIL [Concomitant]
     Dosage: FREQUENCY:DAILY
     Route: 042
     Dates: start: 20090319, end: 20100928
  6. IRINOTECAN HCL [Concomitant]
     Dosage: FREQUENCY:DAILY
     Route: 042
     Dates: start: 20090319, end: 20100928

REACTIONS (5)
  - ACUTE MYOCARDIAL INFARCTION [None]
  - CHEST PAIN [None]
  - DYSPNOEA [None]
  - HYPERHIDROSIS [None]
  - NAUSEA [None]
